FAERS Safety Report 8597452-2 (Version None)
Quarter: 2012Q3

REPORT INFORMATION
  Report Type: 
  Country: None (occurrence: None)
  Receive Date: 20120816
  Receipt Date: 20120806
  Transmission Date: 20120928
  Serious: Yes (Other)
  Sender: FDA-Public Use
  Company Number: US-JNJFOC-20120515241

PATIENT
  Sex: Female

DRUGS (8)
  1. ALL OTHER THERAPEUTIC AGENTS [Concomitant]
     Dosage: FOR A YEAR
     Route: 065
  2. ADVIL [Concomitant]
     Route: 065
  3. STELARA [Suspect]
     Indication: PSORIASIS
     Route: 058
     Dates: start: 20100407, end: 20120206
  4. ENBREL [Suspect]
     Indication: PSORIASIS
     Route: 058
     Dates: start: 20090902, end: 20100309
  5. VYTORIN [Concomitant]
     Indication: DYSLIPIDAEMIA
     Dosage: 10/40
     Route: 048
  6. DIMENHYDRINATE [Concomitant]
     Route: 065
  7. ALL OTHER THERAPEUTIC AGENTS [Concomitant]
     Route: 065
  8. PREDNISONE TAB [Concomitant]
     Route: 048

REACTIONS (2)
  - DRUG DOSE OMISSION [None]
  - LATENT TUBERCULOSIS [None]
